FAERS Safety Report 10477998 (Version 2)
Quarter: 2014Q3

REPORT INFORMATION
  Report Type: Spontaneous
  Country: US (occurrence: US)
  Receive Date: 20140926
  Receipt Date: 20140926
  Transmission Date: 20150326
  Serious: No
  Sender: FDA-Public Use
  Company Number: US-MALLINCKRODT-T201401056

PATIENT
  Sex: Female

DRUGS (1)
  1. KIT FOR THE PREPARATION OF TECHNETIUM (TC-99M) SESTAMIBI INJECTION [Suspect]
     Active Substance: TECHNETIUM TC-99M
     Indication: PRODUCT USED FOR UNKNOWN INDICATION
     Dosage: UNK

REACTIONS (4)
  - Malaise [Unknown]
  - Product container issue [Unknown]
  - Dysgeusia [Unknown]
  - Exposure during pregnancy [Unknown]
